FAERS Safety Report 21331105 (Version 1)
Quarter: 2022Q3

REPORT INFORMATION
  Report Type: Spontaneous
  Country: US (occurrence: None)
  Receive Date: 20220914
  Receipt Date: 20220914
  Transmission Date: 20221027
  Serious: No
  Sender: FDA-Public Use
  Company Number: US-ROCHE-3039775

PATIENT
  Age: 24 Year
  Sex: Male
  Weight: 105.78 kg

DRUGS (2)
  1. XOFLUZA [Suspect]
     Active Substance: BALOXAVIR MARBOXIL
     Indication: Influenza
     Dosage: ONE TIME DOSE
     Route: 048
     Dates: start: 20220210, end: 20220210
  2. XOFLUZA [Suspect]
     Active Substance: BALOXAVIR MARBOXIL
     Indication: Prophylaxis

REACTIONS (7)
  - Swelling of eyelid [Unknown]
  - Eyelid skin dryness [Unknown]
  - Pyrexia [Recovered/Resolved]
  - Blister [Unknown]
  - Lacrimation increased [Unknown]
  - Erythema of eyelid [Unknown]
  - Eyelid pain [Unknown]

NARRATIVE: CASE EVENT DATE: 20220213
